FAERS Safety Report 9004050 (Version 1)
Quarter: 2013Q1

REPORT INFORMATION
  Report Type: Spontaneous
  Country: DE (occurrence: US)
  Receive Date: 20130109
  Receipt Date: 20130109
  Transmission Date: 20140127
  Serious: Yes (Death, Hospitalization)
  Sender: FDA-Public Use
  Company Number: DE-RANBAXY-2012US-63811

PATIENT
  Sex: 0

DRUGS (6)
  1. DOMPERIDONE [Suspect]
     Indication: DYSPEPSIA
     Dosage: UNK
     Route: 065
  2. PANTOPRAZOLE [Suspect]
     Indication: DYSPEPSIA
     Dosage: UNK
     Route: 065
  3. OMEPRAZOLE [Suspect]
     Indication: DYSPEPSIA
     Dosage: UNK
     Route: 065
  4. LANSOPRAZOLE [Suspect]
     Indication: DYSPEPSIA
     Dosage: UNK
     Route: 065
  5. ESOMEPRAZOL [Suspect]
     Indication: DYSPEPSIA
     Dosage: UNK
     Route: 065
  6. RABEPRAZOLE [Suspect]
     Indication: DYSPEPSIA
     Dosage: UNK
     Route: 065

REACTIONS (2)
  - Sudden cardiac death [Fatal]
  - Ventricular arrhythmia [Unknown]
